FAERS Safety Report 24537534 (Version 1)
Quarter: 2024Q4

REPORT INFORMATION
  Report Type: Report from Study
  Country: ZA (occurrence: ZA)
  Receive Date: 20241023
  Receipt Date: 20241023
  Transmission Date: 20250115
  Serious: Yes (Death)
  Sender: ABBVIE
  Company Number: ZA-ABBOTT-2024A-1389981

PATIENT
  Age: 75 Year
  Sex: Female

DRUGS (14)
  1. CREON [Suspect]
     Active Substance: PANCRELIPASE AMYLASE\PANCRELIPASE LIPASE\PANCRELIPASE PROTEASE
     Indication: Pancreatic failure
     Dosage: TAKE ONE CAPSULE THREE TIMES A DAY. CREON 10000
     Route: 048
  2. CREON [Suspect]
     Active Substance: PANCRELIPASE AMYLASE\PANCRELIPASE LIPASE\PANCRELIPASE PROTEASE
     Indication: Pancreatic failure
     Dosage: TAKE ONE CAPSULE THREE TIMES A DAY. CREON 25000
     Route: 048
     Dates: start: 202404
  3. OLANZAPINE [Concomitant]
     Active Substance: OLANZAPINE
     Indication: Mental disorder
     Dosage: 5 MG TAKE ONE TABLET AT NIGHT
     Route: 048
  4. POTASSIUM CHLORIDE [Concomitant]
     Active Substance: POTASSIUM CHLORIDE
     Indication: Hypokalaemia
     Dosage: 600 MG TAKE TWO TABLETS TWICE A DAY
     Route: 048
  5. ONDANSETRON HYDROCHLORIDE [Concomitant]
     Active Substance: ONDANSETRON HYDROCHLORIDE
     Indication: Product used for unknown indication
     Dosage: 8 MG ONE TWICE A DAY
     Route: 048
  6. ADCO-CONTROMET [Concomitant]
     Indication: Product used for unknown indication
     Dosage: 10 MG TAKE ONE TABLET THREE TIMES A DAY
     Route: 048
  7. PULMICORT TURBUHALER [Concomitant]
     Active Substance: BUDESONIDE
     Indication: Rhinitis allergic
     Dosage: 0.5 MG ONE TWICE A DAY
     Route: 048
  8. ZOLPIDEM TARTRATE [Concomitant]
     Active Substance: ZOLPIDEM TARTRATE
     Indication: Sleep disorder
     Dosage: 10 MG TAKE ONE TABLET AT NIGHT
     Route: 048
  9. FUROSEMIDE [Concomitant]
     Active Substance: FUROSEMIDE
     Indication: Hypertension
     Dosage: 40 MG TAKE HALF TABLET TWICE A DAY
     Route: 048
  10. MORPHINE SULFATE [Concomitant]
     Active Substance: MORPHINE SULFATE
     Indication: Pain
     Dosage: 10 MG TAKE TWO TABLETS TWICE A DAY
     Route: 048
  11. CAPTERO [Concomitant]
     Indication: Neoplasm malignant
     Dosage: 500 MG TAKE THREE TABLETS EVERY TWELVE HOURS
     Route: 048
  12. CAPTERO [Concomitant]
     Indication: Neoplasm malignant
     Dosage: 150 MG TAKE THREE TABLETS EVERY TWELVE HOURS
     Route: 048
  13. RIVAROXABAN [Concomitant]
     Active Substance: RIVAROXABAN
     Indication: Blood disorder prophylaxis
     Dosage: 20 MG TAKE ONE TABLET ONCE DAILY
     Route: 048
  14. SPIRACTIN [Concomitant]
     Indication: Hypertension
     Dosage: 25 MG TAKE ONE TABLET IN THE MORNING
     Route: 048

REACTIONS (1)
  - Malignant neoplasm progression [Fatal]
